FAERS Safety Report 5779007-8 (Version None)
Quarter: 2008Q2

REPORT INFORMATION
  Report Type: 
  Country: None (occurrence: None)
  Receive Date: 20080619
  Receipt Date: 20080617
  Transmission Date: 20081010
  Serious: Yes (Other)
  Sender: FDA-Public Use
  Company Number: US-ASTRAZENECA-2008UW12161

PATIENT
  Age: 49 Year
  Sex: Female
  Weight: 86.2 kg

DRUGS (5)
  1. CRESTOR [Suspect]
     Route: 048
     Dates: end: 20080525
  2. DIOVAN [Concomitant]
  3. METFORMIN [Concomitant]
  4. ZETIA [Concomitant]
  5. NAPROSYN [Concomitant]

REACTIONS (4)
  - ARTHRALGIA [None]
  - JOINT SWELLING [None]
  - SKIN DISCOLOURATION [None]
  - TENDONITIS [None]
